FAERS Safety Report 22029393 (Version 1)
Quarter: 2023Q1

REPORT INFORMATION
  Report Type: Spontaneous
  Country: US (occurrence: None)
  Receive Date: 20230221
  Receipt Date: 20230221
  Transmission Date: 20230418
  Serious: No
  Sender: FDA-Public Use
  Company Number: None

PATIENT
  Age: 26 Year
  Sex: Female
  Weight: 67.5 kg

DRUGS (2)
  1. PREPARATION H CREAM MAX STRENGTH [Suspect]
     Active Substance: GLYCERIN\PETROLATUM\PHENYLEPHRINE HYDROCHLORIDE\PRAMOXINE HYDROCHLORIDE
     Indication: Haemorrhoids
     Dosage: FREQUENCY : AT BEDTIME;?
     Route: 061
     Dates: start: 20230220, end: 20230221
  2. Loop implant [Concomitant]

REACTIONS (1)
  - Insomnia [None]

NARRATIVE: CASE EVENT DATE: 20230220
